FAERS Safety Report 26089657 (Version 1)
Quarter: 2025Q4

REPORT INFORMATION
  Report Type: Report from Study
  Country: US (occurrence: US)
  Receive Date: 20251125
  Receipt Date: 20251125
  Transmission Date: 20260117
  Serious: Yes (Other)
  Sender: ABBVIE
  Company Number: US-ABBVIE-6557580

PATIENT
  Age: 58 Year
  Sex: Female

DRUGS (1)
  1. SKYRIZI [Suspect]
     Active Substance: RISANKIZUMAB-RZAA
     Indication: Product used for unknown indication
     Route: 042
     Dates: start: 20250731

REACTIONS (7)
  - Aortic aneurysm [Unknown]
  - Autoimmune disorder [Unknown]
  - Psoriasis [Unknown]
  - Hidradenitis [Unknown]
  - Fibromyalgia [Unknown]
  - Injury [Unknown]
  - Colitis [Unknown]

NARRATIVE: CASE EVENT DATE: 20250101
